FAERS Safety Report 8350629-3 (Version None)
Quarter: 2012Q2

REPORT INFORMATION
  Report Type: 
  Country: None (occurrence: None)
  Receive Date: 20120510
  Receipt Date: 20120504
  Transmission Date: 20120825
  Serious: Yes (Hospitalization)
  Sender: FDA-Public Use
  Company Number: US-MERCK-1202USA03880

PATIENT
  Age: 85 Year
  Sex: Female

DRUGS (2)
  1. FOSAMAX [Suspect]
     Indication: OSTEOPOROSIS
     Route: 048
     Dates: start: 19950101, end: 20070101
  2. FOSAMAX [Suspect]
     Route: 048
     Dates: end: 20070101

REACTIONS (10)
  - CHEST DISCOMFORT [None]
  - PUBIS FRACTURE [None]
  - INTERVERTEBRAL DISC DEGENERATION [None]
  - FRACTURED SACRUM [None]
  - FEMUR FRACTURE [None]
  - CHOLECYSTITIS ACUTE [None]
  - DYSPNOEA [None]
  - LUMBAR SPINAL STENOSIS [None]
  - OEDEMA PERIPHERAL [None]
  - OSTEOPOROTIC FRACTURE [None]
